FAERS Safety Report 9298144 (Version 1)
Quarter: 2013Q2

REPORT INFORMATION
  Report Type: Spontaneous
  Country: US (occurrence: US)
  Receive Date: 20130520
  Receipt Date: 20130520
  Transmission Date: 20140414
  Serious: Yes (Hospitalization)
  Sender: FDA-Public Use
  Company Number: US-B.I. PHARMACEUTICALS,INC./RIDGEFIELD-2013-BI-13362BP

PATIENT
  Age: 68 Year
  Sex: Female
  Weight: 43 kg

DRUGS (16)
  1. SPIRIVA [Suspect]
     Indication: EMPHYSEMA
     Dosage: 18 MG
     Route: 055
     Dates: start: 2010
  2. COMBIVENT [Suspect]
     Indication: EMPHYSEMA
     Dosage: STRENGTH: 18 MCG / 103 MCG; DAILY DOSE: 216MCG/1236MCG
     Route: 055
  3. MULTIVITAMIN [Concomitant]
     Dosage: (TABLET)
     Route: 048
  4. CLONAZEPAM [Concomitant]
     Indication: TREMOR
     Dosage: 0.15 MG
     Route: 048
  5. ENALAPRIL [Concomitant]
     Indication: HYPERTENSION
     Dosage: 20 MG
     Route: 048
  6. NEURONTIN [Concomitant]
     Dosage: 1200 MG
     Route: 048
  7. REQUIP [Concomitant]
     Indication: RESTLESS LEGS SYNDROME
     Dosage: 4 MG
     Route: 048
  8. LOPRESSOR [Concomitant]
     Indication: HYPERTENSION
     Dosage: 100 MG
     Route: 048
  9. KEPPRA [Concomitant]
     Indication: CONVULSION
     Dosage: 500 MG
     Route: 048
  10. LASIX [Concomitant]
     Indication: FLUID RETENTION
     Dosage: 80 MG
     Route: 048
  11. AMITRIPTYLINE [Concomitant]
     Indication: DEPRESSION
     Dosage: 25 MG
     Route: 048
  12. PHENOBARBITAL [Concomitant]
     Indication: CONVULSION
     Dosage: 2044 MG
     Route: 048
  13. LOMOTIL [Concomitant]
     Indication: COLITIS
     Dosage: 0.12 MG
     Route: 048
  14. ATORVASTATIN [Concomitant]
     Indication: BLOOD CHOLESTEROL INCREASED
     Dosage: 20 MG
     Route: 048
  15. ZAROXOLYN [Concomitant]
     Indication: FLUID RETENTION
     Dosage: 2.5 MG
     Route: 048
  16. ADVAIR [Concomitant]
     Indication: EMPHYSEMA
     Dosage: STRENGTH: 200MG/50MG; DAILY DOSE: 200MG/50MG
     Route: 055

REACTIONS (5)
  - Cerebrovascular accident [Recovered/Resolved]
  - Myocardial infarction [Recovered/Resolved]
  - Dyspnoea [Not Recovered/Not Resolved]
  - Product quality issue [Recovered/Resolved]
  - Product quality issue [Recovered/Resolved]
